FAERS Safety Report 5352478-7 (Version None)
Quarter: 2007Q2

REPORT INFORMATION
  Report Type: 
  Country: None (occurrence: None)
  Receive Date: 20070611
  Receipt Date: 20070605
  Transmission Date: 20071010
  Serious: Yes (Hospitalization)
  Sender: FDA-Public Use
  Company Number: B0473098A

PATIENT
  Age: 8 Year
  Sex: Male

DRUGS (5)
  1. ABACAVIR [Suspect]
     Indication: HIV INFECTION
     Dates: start: 20070504
  2. NEVIRAPINE [Suspect]
     Indication: HIV INFECTION
     Dates: start: 20070504
  3. LAMIVUDINE [Suspect]
     Indication: HIV INFECTION
     Dates: start: 20070504
  4. ZIDOVUDINE [Suspect]
     Indication: HIV INFECTION
     Dates: start: 20070504, end: 20070521
  5. COTRIMOXAZOLE [Suspect]
     Dates: end: 20070517

REACTIONS (13)
  - COUGH [None]
  - DRUG HYPERSENSITIVITY [None]
  - FATIGUE [None]
  - FEBRILE NEUTROPENIA [None]
  - HEADACHE [None]
  - MALAISE [None]
  - MOUTH ULCERATION [None]
  - MUCOUS MEMBRANE DISORDER [None]
  - PHARYNGITIS [None]
  - PYREXIA [None]
  - RASH [None]
  - SEPSIS [None]
  - STOMATITIS [None]
